FAERS Safety Report 7244942-0 (Version None)
Quarter: 2011Q1

REPORT INFORMATION
  Report Type: 
  Country: None (occurrence: None)
  Receive Date: 20110126
  Receipt Date: 20101124
  Transmission Date: 20110831
  Serious: Yes (Hospitalization, Other)
  Sender: FDA-Public Use
  Company Number: US-BAYER-2010-001520

PATIENT
  Sex: Female

DRUGS (5)
  1. INTERFERON BETA-1B [Suspect]
     Dosage: 8 MIU, QOD
     Route: 058
  2. INTERFERON BETA-1B [Suspect]
     Indication: MULTIPLE SCLEROSIS
     Dosage: UNK
     Route: 058
     Dates: start: 19931001, end: 19951201
  3. TYLENOL REGULAR [Concomitant]
  4. DEPAKOTE [Concomitant]
  5. INTERFERON BETA-1B [Suspect]
     Dosage: 6 MIU, QOD
     Route: 058
     Dates: start: 20101013

REACTIONS (5)
  - MIGRAINE [None]
  - MOBILITY DECREASED [None]
  - BLEPHAROSPASM [None]
  - MEMORY IMPAIRMENT [None]
  - CONVULSION [None]
